FAERS Safety Report 13900748 (Version 2)
Quarter: 2017Q3

REPORT INFORMATION
  Report Type: Spontaneous
  Country: IL (occurrence: IL)
  Receive Date: 20170823
  Receipt Date: 20170918
  Transmission Date: 20171127
  Serious: Yes (Other)
  Sender: FDA-Public Use
  Company Number: IL-BAXTER-2017BAX030466

PATIENT
  Age: 20 Year
  Sex: Female

DRUGS (2)
  1. OPTALGIN [Suspect]
     Active Substance: METAMIZOLE
     Indication: PRODUCT USED FOR UNKNOWN INDICATION
     Route: 065
     Dates: start: 20170813
  2. TISSEEL [Suspect]
     Active Substance: FIBRINOGEN HUMAN\THROMBIN HUMAN
     Indication: TISSUE SEALING
     Route: 065
     Dates: start: 20170813

REACTIONS (3)
  - Neutropenia [Unknown]
  - White blood cell count decreased [Unknown]
  - General physical health deterioration [Unknown]

NARRATIVE: CASE EVENT DATE: 20170814
